FAERS Safety Report 10040475 (Version 1)
Quarter: 2014Q1

REPORT INFORMATION
  Report Type: Spontaneous
  Country: ES (occurrence: ES)
  Receive Date: 20140327
  Receipt Date: 20140327
  Transmission Date: 20141002
  Serious: Yes (Hospitalization)
  Sender: FDA-Public Use
  Company Number: PHHY2014ES032837

PATIENT
  Age: 77 Year
  Sex: Female

DRUGS (3)
  1. SINTROM [Suspect]
     Indication: ATRIAL FIBRILLATION
     Dosage: UNK UKN, UNK
     Route: 048
     Dates: start: 201310, end: 201312
  2. SIMVASTATIN [Interacting]
     Indication: HYPERLIPIDAEMIA
     Dosage: 10 MG, QD
     Route: 048
     Dates: start: 201210
  3. ACETYLSALICYLIC ACID [Interacting]
     Indication: CEREBROVASCULAR ACCIDENT
     Dosage: 100 MG, QD
     Route: 048
     Dates: start: 201310

REACTIONS (6)
  - Haematoma [Recovered/Resolved]
  - Breast pain [Unknown]
  - Breast enlargement [Unknown]
  - Anaemia [Unknown]
  - International normalised ratio abnormal [Unknown]
  - Drug interaction [Unknown]
